FAERS Safety Report 10247129 (Version 1)
Quarter: 2014Q2

REPORT INFORMATION
  Report Type: Spontaneous
  Country: US (occurrence: None)
  Receive Date: 20140617
  Receipt Date: 20140617
  Transmission Date: 20141212
  Serious: No
  Sender: FDA-Public Use
  Company Number: None

PATIENT
  Age: 59 Year
  Sex: Male
  Weight: 71.67 kg

DRUGS (1)
  1. VIVITROL [Suspect]
     Indication: PROPHYLAXIS
     Dosage: 380 MG. EVERY 28 DAYS  BUTTOCKS
     Dates: start: 20140326

REACTIONS (4)
  - Cough [None]
  - Nasal discomfort [None]
  - Sneezing [None]
  - Productive cough [None]
